FAERS Safety Report 8966731 (Version 3)
Quarter: 2013Q1

REPORT INFORMATION
  Report Type: Spontaneous
  Country: US (occurrence: US)
  Receive Date: 20121214
  Receipt Date: 20130117
  Transmission Date: 20140127
  Serious: Yes (Other)
  Sender: FDA-Public Use
  Company Number: US-009507513-1203USA03501

PATIENT
  Sex: 0

DRUGS (6)
  1. FOSAMAX [Suspect]
     Indication: OSTEOPOROSIS
     Dosage: 10 MG, QD
     Route: 048
     Dates: start: 199701, end: 200202
  2. FOSAMAX [Suspect]
     Dosage: 70 MG, QW
     Route: 048
     Dates: start: 200202, end: 200802
  3. FOSAMAX [Suspect]
     Indication: OSTEOPOROSIS
     Dosage: 70 MG, QW
     Route: 048
     Dates: start: 200803, end: 20100813
  4. VITAMINS (UNSPECIFIED) [Concomitant]
     Dosage: ONE DAILY
     Dates: start: 1970
  5. CALCIUM (UNSPECIFIED) [Concomitant]
     Dosage: 1200 MG, QD
     Dates: start: 1996
  6. VITAMIN D (UNSPECIFIED) [Concomitant]
     Dosage: 200 IU, QD
     Dates: start: 1996

REACTIONS (27)
  - Femur fracture [Unknown]
  - Femur fracture [Unknown]
  - Angiopathy [Unknown]
  - Low turnover osteopathy [Unknown]
  - Road traffic accident [Unknown]
  - Post-traumatic neck syndrome [Unknown]
  - Hypertension [Unknown]
  - Blood cholesterol increased [Unknown]
  - Dyspnoea [Unknown]
  - Osteopenia [Unknown]
  - Bursitis [Unknown]
  - Large intestine polyp [Unknown]
  - Myocardial ischaemia [Unknown]
  - Occipital neuralgia [Unknown]
  - Stomatitis [Unknown]
  - Hypercholesterolaemia [Unknown]
  - Urinary incontinence [Unknown]
  - Macule [Unknown]
  - Retinopathy [Unknown]
  - Migraine [Unknown]
  - Transient ischaemic attack [Recovered/Resolved]
  - Adverse drug reaction [Unknown]
  - Urinary retention [Unknown]
  - Urinary tract infection [Unknown]
  - Nausea [Unknown]
  - Back pain [Unknown]
  - Neck pain [Unknown]
